FAERS Safety Report 20756930 (Version 1)
Quarter: 2022Q2

REPORT INFORMATION
  Report Type: Spontaneous
  Country: HR (occurrence: HR)
  Receive Date: 20220427
  Receipt Date: 20220427
  Transmission Date: 20220721
  Serious: Yes (Hospitalization, Other)
  Sender: FDA-Public Use
  Company Number: HR-MACLEODS PHARMACEUTICALS US LTD-MAC2022035374

PATIENT

DRUGS (10)
  1. TRAMADOL [Suspect]
     Active Substance: TRAMADOL
     Indication: Product used for unknown indication
     Dosage: 100 MILLIGRAM, BID (EVERY 12 HOURS)
     Route: 065
  2. TRAMADOL [Suspect]
     Active Substance: TRAMADOL
     Dosage: UNK, QD, UP TO 1000 MG TRAMADOL A DAY
     Route: 065
  3. DIAZEPAM [Suspect]
     Active Substance: DIAZEPAM
     Indication: Product used for unknown indication
     Dosage: UNK, SELF-MEDICATING HERSELF WITH A LOW DOSE OF DIAZEPAM (2 MG DAILY) BUT GRADUALLY AUGMENTED THE DO
     Route: 065
  4. DIAZEPAM [Suspect]
     Active Substance: DIAZEPAM
     Dosage: 10 MILLIGRAM, TID (EVERY 8 HOURS)
     Route: 065
  5. DIAZEPAM [Suspect]
     Active Substance: DIAZEPAM
     Dosage: 2 MILLIGRAM, QD, SELF-MEDICATING HERSELF WITH A LOW DOSE OF DIAZEPAM (2 MG DAILY) BUT GRADUALLY AUGM
     Route: 065
  6. METHYLPHENIDATE HYDROCHLORIDE [Suspect]
     Active Substance: METHYLPHENIDATE HYDROCHLORIDE
     Indication: Product used for unknown indication
     Dosage: 18 MILLIGRAM, QD
     Route: 065
  7. METHYLPHENIDATE HYDROCHLORIDE [Suspect]
     Active Substance: METHYLPHENIDATE HYDROCHLORIDE
     Dosage: UNK UNK, QD, UP TO 540 MG A DAY
     Route: 065
  8. ZOLPIDEM [Suspect]
     Active Substance: ZOLPIDEM TARTRATE
     Indication: Product used for unknown indication
     Dosage: 300 MILLIGRAM, QD
     Route: 065
  9. ZOLPIDEM [Suspect]
     Active Substance: ZOLPIDEM TARTRATE
     Dosage: UNK, QD, UP TO 300 MG ZOLPIDEM
     Route: 065
  10. LAMOTRIGINE [Concomitant]
     Active Substance: LAMOTRIGINE
     Indication: Seizure
     Dosage: 50 MILLIGRAM, BID (EVERY 12 HOUR), DOSE INCREASED
     Route: 065

REACTIONS (8)
  - Memory impairment [Recovered/Resolved]
  - Fatigue [Recovered/Resolved]
  - Self-medication [Recovered/Resolved]
  - Condition aggravated [Recovered/Resolved]
  - Anxiety [Recovered/Resolved]
  - Somnolence [Recovered/Resolved]
  - Drug dependence [Recovered/Resolved]
  - Drug withdrawal syndrome [Recovered/Resolved]
